FAERS Safety Report 14249582 (Version 1)
Quarter: 2017Q4

REPORT INFORMATION
  Report Type: Spontaneous
  Country: US (occurrence: None)
  Receive Date: 20171204
  Receipt Date: 20171204
  Transmission Date: 20180321
  Serious: No
  Sender: FDA-Public Use
  Company Number: None

PATIENT
  Sex: Female
  Weight: 93.44 kg

DRUGS (1)
  1. REMICADE [Suspect]
     Active Substance: INFLIXIMAB
     Indication: RHEUMATOID ARTHRITIS
     Dosage: INITIAL DOSE: 285MG WKS 0,2, + 6 IV
     Route: 042
     Dates: start: 201711

REACTIONS (4)
  - Diarrhoea [None]
  - Rash [None]
  - Dry mouth [None]
  - Feeling hot [None]
